FAERS Safety Report 15565267 (Version 4)
Quarter: 2018Q4

REPORT INFORMATION
  Report Type: Spontaneous
  Country: FR (occurrence: FR)
  Receive Date: 20181030
  Receipt Date: 20181214
  Transmission Date: 20190205
  Serious: Yes (Death, Other)
  Sender: FDA-Public Use
  Company Number: PHHY2018FR087761

PATIENT
  Age: 75 Year
  Sex: Male

DRUGS (6)
  1. DEXAMETHASONE. [Concomitant]
     Active Substance: DEXAMETHASONE
     Dosage: 20 MG, UNK (EACH INFUSION FOR FOUR CYCLES)
     Route: 065
  2. DEXAMETHASONE. [Concomitant]
     Active Substance: DEXAMETHASONE
     Indication: CRYOGLOBULINAEMIA
     Dosage: 10 MG, UNK (DURING ONE MORE CYCLE)
     Route: 065
  3. NIVOLUMAB [Concomitant]
     Active Substance: NIVOLUMAB
     Indication: LUNG NEOPLASM MALIGNANT
     Dosage: UNK
     Route: 065
  4. PREDNISONE. [Suspect]
     Active Substance: PREDNISONE
     Indication: CRYOGLOBULINAEMIA
     Dosage: 40 MG, QD (PROGRESSIVELY TAPERED)
     Route: 065
     Dates: start: 2013
  5. BORTEZOMIB. [Suspect]
     Active Substance: BORTEZOMIB
     Indication: CRYOGLOBULINAEMIA
     Dosage: 1.3 MG/M2, QW (DAYS 1, 8, 15 AND 22 PATIENT RECEIVED SIX COMPLETE CYCLES)
     Route: 058
     Dates: start: 201411
  6. CYCLOPHOSPHAMIDE. [Suspect]
     Active Substance: CYCLOPHOSPHAMIDE
     Indication: CRYOGLOBULINAEMIA
     Dosage: 750 MG/M2, UNK (INTRAVENOUS INFUSIONS FOR 6 MONTH)
     Route: 042
     Dates: start: 201404, end: 201410

REACTIONS (5)
  - Drug ineffective [Unknown]
  - Malignant neoplasm progression [Fatal]
  - Pneumonia [Recovered/Resolved]
  - Toxicity to various agents [Unknown]
  - Off label use [Unknown]
